FAERS Safety Report 16915868 (Version 1)
Quarter: 2019Q4

REPORT INFORMATION
  Report Type: Spontaneous
  Country: GB (occurrence: GB)
  Receive Date: 20191014
  Receipt Date: 20191014
  Transmission Date: 20200122
  Serious: Yes (Other)
  Sender: FDA-Public Use
  Company Number: GB-MYLANLABS-2019M1096376

PATIENT
  Age: 72 Year
  Sex: Female
  Weight: 88 kg

DRUGS (10)
  1. DOXAZOSIN [Suspect]
     Active Substance: DOXAZOSIN MESYLATE
     Indication: PRODUCT USED FOR UNKNOWN INDICATION
     Dosage: 4 MILLIGRAM, QD, TAKE ONE DAILY
     Dates: start: 20190510, end: 20190610
  2. AMITRIPTYLINE HYDROCHLORIDE. [Concomitant]
     Active Substance: AMITRIPTYLINE HYDROCHLORIDE
     Dosage: 1-2 TABLETS AT NIGHT
     Dates: start: 20190510, end: 20190517
  3. CARBAMAZEPINE. [Concomitant]
     Active Substance: CARBAMAZEPINE
     Dosage: 1 TWICE/DAY,INCREASE TO 2 TABLETS TWICE
     Dates: start: 20190531, end: 20190607
  4. DILTIAZEM. [Concomitant]
     Active Substance: DILTIAZEM
     Dosage: 2 DOSAGE FORM, QD
     Dates: start: 20190218
  5. PANTOPRAZOLE [Concomitant]
     Active Substance: PANTOPRAZOLE
     Dosage: 1 DOSAGE FORM, QD
     Dates: start: 20190218
  6. ATORVASTATIN [Concomitant]
     Active Substance: ATORVASTATIN
     Dosage: 1 DOSAGE FORM, QD
     Dates: start: 20190218
  7. RIVAROXABAN [Concomitant]
     Active Substance: RIVAROXABAN
     Dosage: 1 DOSAGE FORM, QD
     Dates: start: 20190218
  8. INDAPAMIDE. [Concomitant]
     Active Substance: INDAPAMIDE
     Dosage: MORNING
     Dates: start: 20190610
  9. FEXOFENADINE [Concomitant]
     Active Substance: FEXOFENADINE HYDROCHLORIDE
     Dosage: 1 DOSAGE FORM, QD
     Dates: start: 20190610
  10. DIAZEPAM. [Concomitant]
     Active Substance: DIAZEPAM
     Dosage: TAKE ONE TABLET (MAX 2MG DAILY)
     Dates: start: 20190218

REACTIONS (2)
  - Urticaria [Recovered/Resolved]
  - Urinary incontinence [Unknown]

NARRATIVE: CASE EVENT DATE: 20190627
